FAERS Safety Report 6770596-3 (Version None)
Quarter: 2010Q2

REPORT INFORMATION
  Report Type: 
  Country: None (occurrence: None)
  Receive Date: 20100615
  Receipt Date: 20100607
  Transmission Date: 20101027
  Serious: Yes (Other)
  Sender: FDA-Public Use
  Company Number: TN-WATSON-2010-07582

PATIENT
  Age: 2 Month
  Sex: Female

DRUGS (2)
  1. ALENDRONATE SODIUM [Suspect]
     Indication: OSTEOGENESIS IMPERFECTA
     Dosage: 10 MG, DAILY
     Route: 064
  2. PAMIDRONATE DISODIUM [Suspect]
     Indication: OSTEOGENESIS IMPERFECTA
     Dosage: 90 MAG IV EVERY 4 MONTHS
     Route: 064

REACTIONS (1)
  - HYPOCALCAEMIA [None]
